FAERS Safety Report 5079907-0 (Version None)
Quarter: 2006Q3

REPORT INFORMATION
  Report Type: 
  Country: None (occurrence: None)
  Receive Date: 20060720
  Receipt Date: 20050705
  Transmission Date: 20061208
  Serious: Yes (Hospitalization)
  Sender: FDA-Public Use
  Company Number: 2005100083

PATIENT

DRUGS (11)
  1. CELEBREX [Suspect]
     Indication: ARTHRALGIA
     Dosage: 400 (200 MG,2 IN 1 D),ORAL
     Route: 048
  2. ZANTAC [Concomitant]
  3. OXYBUTYNIN CHLORIDE [Concomitant]
  4. MESALAMINE [Concomitant]
  5. PROCHLORPERAZINE MALEATE [Concomitant]
  6. ACETAMINOPHEN [Concomitant]
  7. ELAVIL [Concomitant]
  8. POTASSIUM CHLORIDE [Concomitant]
  9. PSYLLIUM (PSYLLIUM) [Concomitant]
  10. BISACODYL (BISACODYL) [Concomitant]
  11. CYCLOBENZAPRINE HCL [Concomitant]

REACTIONS (13)
  - AORTIC VALVE INCOMPETENCE [None]
  - BLOOD GLUCOSE INCREASED [None]
  - CHEST PAIN [None]
  - COAGULOPATHY [None]
  - DILATATION ATRIAL [None]
  - GASTROOESOPHAGEAL REFLUX DISEASE [None]
  - HYPERTENSION [None]
  - HYPOPHOSPHATAEMIA [None]
  - LIVER FUNCTION TEST ABNORMAL [None]
  - MACROCYTOSIS [None]
  - MITRAL VALVE INCOMPETENCE [None]
  - MYOCARDIAL INFARCTION [None]
  - TRICUSPID VALVE INCOMPETENCE [None]
